FAERS Safety Report 25371356 (Version 1)
Quarter: 2025Q2

REPORT INFORMATION
  Report Type: Spontaneous
  Country: US (occurrence: US)
  Receive Date: 20250529
  Receipt Date: 20250529
  Transmission Date: 20250716
  Serious: Yes (Other)
  Sender: SPECGX
  Company Number: US-SPECGX-T202500978

PATIENT

DRUGS (1)
  1. HYDROMORPHONE [Suspect]
     Active Substance: HYDROMORPHONE
     Indication: Drug withdrawal syndrome
     Route: 065

REACTIONS (2)
  - Endotracheal intubation [Unknown]
  - Drug ineffective for unapproved indication [Unknown]
